FAERS Safety Report 6657738-5 (Version None)
Quarter: 2010Q1

REPORT INFORMATION
  Report Type: 
  Country: None (occurrence: None)
  Receive Date: 20100330
  Receipt Date: 20100326
  Transmission Date: 20100710
  Serious: Yes (Death, Hospitalization, Other)
  Sender: FDA-Public Use
  Company Number: CA-ABBOTT-10P-028-0628543-00

PATIENT
  Sex: Male
  Weight: 78.088 kg

DRUGS (8)
  1. LUPRON DEPOT [Suspect]
     Indication: PROSTATE CANCER
     Dates: start: 20070817, end: 20091206
  2. XALATAN [Concomitant]
     Indication: GLAUCOMA
     Dosage: 1 GTT IN BOTH EYES, DAILY
     Dates: start: 19950101
  3. BICALUTAMIDE [Concomitant]
     Indication: PROSTATE CANCER
     Dates: start: 20070801
  4. SOFLAX [Concomitant]
     Indication: CONSTIPATION PROPHYLAXIS
     Dosage: 1 TAB IN THE AM AND 2 TABS QHS
     Route: 048
     Dates: start: 20070730
  5. TYLENOL W/ CODEINE NO. 3 [Concomitant]
     Indication: SPINAL COLUMN STENOSIS
     Route: 048
     Dates: start: 20070426
  6. ELTROXIN [Concomitant]
     Indication: HYPOTHYROIDISM
     Route: 048
     Dates: start: 19700101
  7. METFORMIN HCL [Concomitant]
     Indication: DIABETES MELLITUS
     Dosage: 2 TABS, BID
     Dates: start: 20030101
  8. QUININE [Concomitant]
     Indication: MUSCLE SPASMS
     Route: 048
     Dates: start: 19950101

REACTIONS (6)
  - COMPUTERISED TOMOGRAM ABNORMAL [None]
  - CYSTITIS [None]
  - DECREASED APPETITE [None]
  - PROSTATE CANCER [None]
  - PULMONARY THROMBOSIS [None]
  - PYREXIA [None]
